FAERS Safety Report 4598856-5 (Version None)
Quarter: 2005Q1

REPORT INFORMATION
  Report Type: 
  Country: None (occurrence: None)
  Receive Date: 20050301
  Receipt Date: 20050224
  Transmission Date: 20050727
  Serious: Yes (Hospitalization, Other)
  Sender: FDA-Public Use
  Company Number: 2004035048

PATIENT
  Age: 61 Year
  Sex: Female

DRUGS (8)
  1. LIPITOR [Suspect]
     Indication: HYPERCHOLESTEROLAEMIA
     Dosage: 10 MEQ (10 MG, 1 IN 1 D), ORAL
     Route: 048
     Dates: start: 20020701, end: 20040128
  2. ACETYLSALICYLIC ACID 9ACETYLSALICYLIC ACID0 [Concomitant]
  3. CALCIUM WITH VITAMIN D (CALCIUM PHOSPHATE, CALCIUM SODIUM LACTATE, ERG [Concomitant]
  4. CENTRUM (MINERALS NOS, VITAMINS NOS) [Concomitant]
  5. TOCOPHEROL (TOCOPHEROL) [Concomitant]
  6. ACETAMINOPHEN [Concomitant]
  7. AMOXICILLIN [Concomitant]
  8. ESTROPIPATE [Concomitant]

REACTIONS (17)
  - ADVERSE DRUG REACTION [None]
  - ANAL CANCER STAGE III [None]
  - ANOREXIA [None]
  - BACTERIAL INFECTION [None]
  - BLOOD GLUCOSE INCREASED [None]
  - CATHETER RELATED INFECTION [None]
  - CONSTIPATION [None]
  - DYSURIA [None]
  - LYMPHADENOPATHY [None]
  - PARAESTHESIA [None]
  - PNEUMONIA [None]
  - PNEUMONITIS [None]
  - POST PROCEDURAL DIARRHOEA [None]
  - RECTAL HAEMORRHAGE [None]
  - RENAL FAILURE [None]
  - RHABDOMYOLYSIS [None]
  - VAGINAL HAEMORRHAGE [None]
